FAERS Safety Report 18545760 (Version 2)
Quarter: 2020Q4

REPORT INFORMATION
  Report Type: Spontaneous
  Country: US (occurrence: US)
  Receive Date: 20201125
  Receipt Date: 20201214
  Transmission Date: 20210114
  Serious: No
  Sender: FDA-Public Use
  Company Number: US-ASTRAZENECA-2020SF43167

PATIENT
  Age: 49 Year
  Sex: Female

DRUGS (1)
  1. BREZTRI AEROSPHERE [Suspect]
     Active Substance: BUDESONIDE\FORMOTEROL\GLYCOPYRRONIUM
     Dosage: 2 PUFFS TWICE DAILY
     Route: 055
     Dates: start: 202010

REACTIONS (3)
  - Wrong technique in device usage process [Unknown]
  - Cough [Unknown]
  - Device malfunction [Unknown]
